FAERS Safety Report 16835797 (Version 1)
Quarter: 2019Q3

REPORT INFORMATION
  Report Type: Report from Study
  Country: US (occurrence: US)
  Receive Date: 20190920
  Receipt Date: 20190920
  Transmission Date: 20191005
  Serious: Yes (Other)
  Sender: FDA-Public Use
  Company Number: US-GLAXOSMITHKLINE-2019-TSO00376-US

PATIENT
  Age: 65 Year
  Sex: Female

DRUGS (9)
  1. NIRAPARIB [Suspect]
     Active Substance: NIRAPARIB
     Dosage: 300 MG QD AND SOMEDAYS ONLY 100 MG QD
     Dates: start: 20190611
  2. NIRAPARIB [Suspect]
     Active Substance: NIRAPARIB
     Dosage: 200 MG, QD FOR 1 WEEK
     Dates: start: 2018, end: 2018
  3. NIRAPARIB [Suspect]
     Active Substance: NIRAPARIB
     Dosage: 200MG ON M/W/F, 100MG/DAY OTHER 4 DAYS OF THE WEEK
     Dates: start: 201903
  4. NIRAPARIB [Suspect]
     Active Substance: NIRAPARIB
     Dosage: 300 MG, QD FOR 1 WEEK
     Dates: start: 2018, end: 2018
  5. NIRAPARIB [Suspect]
     Active Substance: NIRAPARIB
     Dosage: 100 MG, QD
     Dates: start: 20181211
  6. NIRAPARIB [Suspect]
     Active Substance: NIRAPARIB
     Dosage: 300 MG, QD
     Dates: start: 20190503
  7. NIRAPARIB [Suspect]
     Active Substance: NIRAPARIB
     Dosage: 100 MG, QD FOR 1 WEEK
     Dates: start: 20181023
  8. NIRAPARIB [Suspect]
     Active Substance: NIRAPARIB
     Dosage: 100 UNK, UNK
     Dates: start: 201908
  9. NIRAPARIB [Suspect]
     Active Substance: NIRAPARIB
     Dosage: 200 MG, QD
     Dates: start: 20190219

REACTIONS (12)
  - Constipation [Not Recovered/Not Resolved]
  - Fatigue [Unknown]
  - Platelet count decreased [Recovered/Resolved]
  - Platelet count decreased [Recovered/Resolved]
  - Inappropriate schedule of product administration [Unknown]
  - Energy increased [Recovered/Resolved]
  - Carbohydrate antigen 125 increased [Unknown]
  - Neoplasm malignant [Unknown]
  - Insomnia [Unknown]
  - Haemoglobin decreased [Unknown]
  - Palpitations [Unknown]
  - Underdose [Unknown]

NARRATIVE: CASE EVENT DATE: 20190607
